FAERS Safety Report 9517619 (Version 1)
Quarter: 2013Q3

REPORT INFORMATION
  Report Type: Spontaneous
  Country: US (occurrence: US)
  Receive Date: 20130912
  Receipt Date: 20130912
  Transmission Date: 20140515
  Serious: No
  Sender: FDA-Public Use
  Company Number: US-B.I. PHARMACEUTICALS,INC./RIDGEFIELD-2013-BI-27315BP

PATIENT
  Age: 76 Year
  Sex: Female
  Weight: 104 kg

DRUGS (12)
  1. SPIRIVA [Suspect]
     Indication: CHRONIC OBSTRUCTIVE PULMONARY DISEASE
     Dosage: 18 MCG
     Route: 055
     Dates: start: 2004
  2. ADVAIR [Concomitant]
     Indication: CHRONIC OBSTRUCTIVE PULMONARY DISEASE
     Dosage: 2 PUF
     Route: 055
     Dates: start: 2003
  3. LASIX [Concomitant]
     Indication: FLUID RETENTION
     Dosage: 100 MG
     Route: 048
     Dates: start: 1993
  4. LEVOTHYROXINE [Concomitant]
     Indication: HYPOTHYROIDISM
     Dosage: 1 MG
     Route: 048
     Dates: start: 1963
  5. POTASSIUM [Concomitant]
     Indication: SUPPLEMENTATION THERAPY
     Dosage: 2 ANZ
     Route: 048
     Dates: start: 2010
  6. METOPROLOL XL [Concomitant]
     Indication: CARDIAC DISORDER
     Dosage: 100 MG
     Route: 048
  7. WARFARIN [Concomitant]
     Indication: ATRIAL FIBRILLATION
     Dosage: 5 MG
     Route: 048
  8. OCUVITE [Concomitant]
     Indication: EYE DISORDER
     Dosage: 1 ANZ
     Route: 048
     Dates: start: 2010
  9. SPIRONOLACTONE [Concomitant]
     Dosage: 50 MG
     Dates: start: 2011
  10. FISH OIL [Concomitant]
     Indication: BLOOD CHOLESTEROL INCREASED
     Dosage: 2 ANZ
     Route: 048
  11. ALBUTEROL [Concomitant]
     Indication: INHALATION THERAPY
     Route: 055
  12. OXYCODONE [Concomitant]
     Indication: RHEUMATOID ARTHRITIS
     Dosage: DOSE PER APPLICATION: 5-325
     Route: 048

REACTIONS (2)
  - Dysphonia [Not Recovered/Not Resolved]
  - Nasal congestion [Not Recovered/Not Resolved]
